FAERS Safety Report 7522608-7 (Version None)
Quarter: 2011Q2

REPORT INFORMATION
  Report Type: 
  Country: None (occurrence: None)
  Receive Date: 20110603
  Receipt Date: 20110530
  Transmission Date: 20111010
  Serious: Yes (Death, Other)
  Sender: FDA-Public Use
  Company Number: JP-PFIZER INC-2011115825

PATIENT
  Age: 81 Year
  Sex: Female

DRUGS (4)
  1. METHOTREXATE SODIUM [Suspect]
     Dosage: 2 MG DAILY
     Route: 048
     Dates: start: 20101008
  2. MEDROL [Suspect]
     Indication: INTERSTITIAL LUNG DISEASE
     Dosage: 4 MG DAILY
     Route: 048
     Dates: start: 20101008
  3. BISOLVON [Concomitant]
     Indication: INTERSTITIAL LUNG DISEASE
     Dosage: UNK
     Dates: start: 20101008
  4. DORIPENEM MONOHYDRATE [Suspect]
     Indication: INTERSTITIAL LUNG DISEASE
     Dosage: UNK
     Route: 042
     Dates: start: 20101008

REACTIONS (2)
  - INTERSTITIAL LUNG DISEASE [None]
  - PNEUMONIA [None]
